FAERS Safety Report 9538060 (Version 2)
Quarter: 2013Q3

REPORT INFORMATION
  Report Type: Spontaneous
  Country: JP (occurrence: JP)
  Receive Date: 20130920
  Receipt Date: 20130920
  Transmission Date: 20140515
  Serious: Yes (Death)
  Sender: FDA-Public Use
  Company Number: JP-ROCHE-1090895

PATIENT
  Age: 53 Year
  Sex: Male

DRUGS (6)
  1. RITUXIMAB [Suspect]
     Indication: LYMPHOMA
     Route: 042
     Dates: start: 20110506, end: 20120529
  2. KENKETU GLOVENIN-I [Suspect]
     Indication: HYPOGLOBULINAEMIA
     Route: 065
     Dates: start: 20120710
  3. GAMMA GLOBULIN [Concomitant]
     Route: 065
     Dates: start: 20120710
  4. FLUDARABINE [Concomitant]
     Route: 065
     Dates: start: 20120418, end: 20120423
  5. MELPHALAN [Concomitant]
     Route: 065
     Dates: start: 20120418, end: 20120423
  6. LIDOCAINE [Concomitant]
     Route: 042

REACTIONS (1)
  - Acute respiratory distress syndrome [Fatal]
